FAERS Safety Report 25590702 (Version 1)
Quarter: 2025Q3

REPORT INFORMATION
  Report Type: Spontaneous
  Country: GB (occurrence: GB)
  Receive Date: 20250722
  Receipt Date: 20250722
  Transmission Date: 20251020
  Serious: Yes (Hospitalization)
  Sender: Amivas
  Company Number: GB-AMIVAS INC.-20250700008

PATIENT

DRUGS (1)
  1. ARTESUNATE [Suspect]
     Active Substance: ARTESUNATE
     Indication: Malaria
     Route: 042

REACTIONS (1)
  - Methaemoglobinaemia [Recovered/Resolved]
